FAERS Safety Report 23903471 (Version 1)
Quarter: 2024Q2

REPORT INFORMATION
  Report Type: Report from Study
  Country: KW (occurrence: KW)
  Receive Date: 20240527
  Receipt Date: 20240527
  Transmission Date: 20240716
  Serious: Yes (Other)
  Sender: FDA-Public Use
  Company Number: KW-ABBVIE-5773685

PATIENT
  Age: 41 Year
  Sex: Male

DRUGS (1)
  1. SKYRIZI [Suspect]
     Active Substance: RISANKIZUMAB-RZAA
     Indication: Psoriasis
     Dosage: FORM STRENGTH: 75 MILLIGRAM
     Route: 058
     Dates: start: 20200611, end: 202405

REACTIONS (1)
  - Pulmonary tuberculosis [Not Recovered/Not Resolved]

NARRATIVE: CASE EVENT DATE: 20240514
